FAERS Safety Report 6265668-6 (Version None)
Quarter: 2009Q3

REPORT INFORMATION
  Report Type: 
  Country: None (occurrence: None)
  Receive Date: 20090709
  Receipt Date: 20090709
  Transmission Date: 20100115
  Serious: Yes (Life-Threatening)
  Sender: FDA-Public Use
  Company Number: None

PATIENT
  Age: 62 Year
  Sex: Male
  Weight: 56.9718 kg

DRUGS (2)
  1. ATENOLOL [Suspect]
     Indication: HYPERTENSION
     Dosage: 25MG QDAY PO
     Route: 048
     Dates: start: 20090617, end: 20090707
  2. SERTRALINE [Suspect]
     Indication: DEPRESSION
     Dosage: 50MG -2.5ML- QDAY PO
     Route: 048
     Dates: start: 20090514, end: 20090707

REACTIONS (1)
  - THROMBOCYTOPENIA [None]
